FAERS Safety Report 6095377-8 (Version None)
Quarter: 2009Q1

REPORT INFORMATION
  Report Type: 
  Country: None (occurrence: None)
  Receive Date: 20090227
  Receipt Date: 20080319
  Transmission Date: 20090719
  Serious: No
  Sender: FDA-Public Use
  Company Number: A0716451A

PATIENT
  Age: 50 Year
  Sex: Male

DRUGS (3)
  1. LAMICTAL [Suspect]
     Indication: EPILEPSY
     Dosage: 200MG FOUR TIMES PER DAY
     Route: 048
     Dates: start: 20070101
  2. BLOOD PRESSURE MEDICATION [Suspect]
     Route: 065
  3. DECONGESTANT [Suspect]
     Route: 065

REACTIONS (2)
  - PRURITUS [None]
  - RASH [None]
